FAERS Safety Report 25062718 (Version 2)
Quarter: 2025Q2

REPORT INFORMATION
  Report Type: Spontaneous
  Country: FR (occurrence: FR)
  Receive Date: 20250311
  Receipt Date: 20250430
  Transmission Date: 20250716
  Serious: Yes (Hospitalization)
  Sender: CELLTRION
  Company Number: FR-CELLTRION INC.-2025FR005235

PATIENT

DRUGS (8)
  1. INFLIXIMAB [Suspect]
     Active Substance: INFLIXIMAB
     Indication: Ankylosing spondylitis
     Dosage: 120 MILLIGRAM EVERY TWO WEEKS
     Route: 058
     Dates: start: 202412
  2. INFLIXIMAB [Suspect]
     Active Substance: INFLIXIMAB
     Indication: Psoriasis
     Dosage: 120 MILLIGRAM EVERY TWO WEEKS
     Route: 058
  3. INFLIXIMAB [Suspect]
     Active Substance: INFLIXIMAB
     Dosage: 120 MILLIGRAM EVERY TWO WEEKS
     Route: 058
  4. INFLIXIMAB [Suspect]
     Active Substance: INFLIXIMAB
     Indication: Psoriatic arthropathy
     Route: 042
     Dates: start: 20241107
  5. INFLIXIMAB [Suspect]
     Active Substance: INFLIXIMAB
     Indication: Spondyloarthropathy
     Route: 042
     Dates: start: 20241121
  6. CHOLECALCIFEROL [Concomitant]
     Active Substance: CHOLECALCIFEROL
  7. EBASTINE [Concomitant]
     Active Substance: EBASTINE
  8. CIMETIDINE [Concomitant]
     Active Substance: CIMETIDINE

REACTIONS (5)
  - Hospitalisation [Recovering/Resolving]
  - Disease recurrence [Recovering/Resolving]
  - Loss of therapeutic response [Not Recovered/Not Resolved]
  - Treatment failure [Unknown]
  - Intentional product use issue [Unknown]

NARRATIVE: CASE EVENT DATE: 20241107
